FAERS Safety Report 4657764-1 (Version None)
Quarter: 2005Q2

REPORT INFORMATION
  Report Type: 
  Country: None (occurrence: None)
  Receive Date: 20050505
  Receipt Date: 20040702
  Transmission Date: 20051028
  Serious: Yes (Hospitalization)
  Sender: FDA-Public Use
  Company Number: US-2004-025420

PATIENT
  Age: 82 Year
  Sex: Male
  Weight: 72 kg

DRUGS (7)
  1. REFLUDAN [Suspect]
     Indication: HEPARIN-INDUCED THROMBOCYTOPENIA
     Dosage: 0.075 MG/KG/HR DRIP, INTRAVENOUS
     Route: 042
     Dates: start: 20040512, end: 20040515
  2. SYNTHROID [Concomitant]
  3. CORDARONE [Concomitant]
  4. FOLIC ACID [Concomitant]
  5. TRANSDERM-NITRO [Concomitant]
  6. LOPRESSOR [Concomitant]
  7. PROSCAR [Concomitant]

REACTIONS (2)
  - HAEMORRHAGE [None]
  - MEDICATION ERROR [None]
